FAERS Safety Report 9362943 (Version 4)
Quarter: 2013Q3

REPORT INFORMATION
  Report Type: Spontaneous
  Country: US (occurrence: None)
  Receive Date: 20130619
  Receipt Date: 20130816
  Transmission Date: 20140515
  Serious: Yes (Death, Hospitalization)
  Sender: FDA-Public Use
  Company Number: 2013-241

PATIENT
  Age: 64 Year
  Sex: Male
  Weight: 88.9 kg

DRUGS (8)
  1. PRIALT (ZICONOTIDE) INTRATHECAL INFUSION [Suspect]
     Indication: PAIN
     Dosage: UNK MCG, ONCE/HOUR, INTRATHECAL
     Route: 037
  2. PRIALT (ZICONOTIDE) INTRATHECAL INFUSION [Suspect]
     Indication: POST LAMINECTOMY SYNDROME
     Dosage: UNK MCG, ONCE/HOUR, INTRATHECAL
     Route: 037
  3. PRIALT (ZICONOTIDE) INTRATHECAL INFUSION [Suspect]
     Indication: METASTATIC NEOPLASM
     Dosage: UNK MCG, ONCE/HOUR, INTRATHECAL
     Route: 037
  4. PRIALT (ZICONOTIDE) INTRATHECAL INFUSION [Suspect]
     Indication: BACK PAIN
     Dosage: UNK MCG, ONCE/HOUR, INTRATHECAL
     Route: 037
  5. BUPIVACAINE HYDROCHLORIDE [Suspect]
     Indication: PAIN
     Dosage: UNK MG, ONCE/HOUR, INTRATHECAL
     Route: 037
  6. BUPIVACAINE HYDROCHLORIDE [Suspect]
     Indication: POST LAMINECTOMY SYNDROME
     Dosage: UNK MG, ONCE/HOUR, INTRATHECAL
     Route: 037
  7. MORPHINE SULFATE (MORPHINE SULFATE) INJECTION [Suspect]
     Indication: PAIN
     Dosage: UNK MG, ONCE/HOUR, INTRATHECAL
     Route: 037
  8. MORPHINE SULFATE (MORPHINE SULFATE) INJECTION [Suspect]
     Indication: POST LAMINECTOMY SYNDROME
     Dosage: UNK MG, ONCE/HOUR, INTRATHECAL
     Route: 037

REACTIONS (3)
  - Hip arthroplasty [None]
  - Post procedural sepsis [None]
  - Fall [None]
